FAERS Safety Report 17077182 (Version 2)
Quarter: 2019Q4

REPORT INFORMATION
  Report Type: Spontaneous
  Country: US (occurrence: US)
  Receive Date: 20191126
  Receipt Date: 20191127
  Transmission Date: 20200122
  Serious: No
  Sender: FDA-Public Use
  Company Number: US-TEVA-2019-US-1142900

PATIENT

DRUGS (1)
  1. BENZOYL PEROXIDE W/CLINDAMYCIN TEVA [Suspect]
     Active Substance: BENZOYL PEROXIDE\CLINDAMYCIN
     Indication: ACNE
     Route: 065

REACTIONS (4)
  - Product container seal issue [Unknown]
  - Product substitution issue [Unknown]
  - Therapeutic product effect decreased [Unknown]
  - Product physical issue [Unknown]
